FAERS Safety Report 8508918-5 (Version None)
Quarter: 2012Q3

REPORT INFORMATION
  Report Type: 
  Country: None (occurrence: None)
  Receive Date: 20120713
  Receipt Date: 20120706
  Transmission Date: 20120928
  Serious: Yes (Hospitalization)
  Sender: FDA-Public Use
  Company Number: US-ASTRAZENECA-2012SE37394

PATIENT
  Age: 66 Year
  Sex: Female

DRUGS (2)
  1. TOPROL-XL [Suspect]
     Route: 048
  2. PLAVIX [Concomitant]

REACTIONS (3)
  - DRUG DOSE OMISSION [None]
  - CHEST PAIN [None]
  - STENT MALFUNCTION [None]
